FAERS Safety Report 6140643-0 (Version None)
Quarter: 2009Q1

REPORT INFORMATION
  Report Type: 
  Country: None (occurrence: None)
  Receive Date: 20090331
  Receipt Date: 20090331
  Transmission Date: 20090719
  Serious: Yes (Hospitalization)
  Sender: FDA-Public Use
  Company Number: None

PATIENT
  Sex: Male
  Weight: 84.8226 kg

DRUGS (1)
  1. BCG LIVE TICE 50MG ORGANON [Suspect]
     Indication: BLADDER CANCER
     Dosage: 50MG ONCE A WEEK INTRAVESCIAL
     Route: 043
     Dates: start: 20080321, end: 20080328

REACTIONS (4)
  - CHILLS [None]
  - FLANK PAIN [None]
  - PYREXIA [None]
  - TACHYCARDIA [None]
